FAERS Safety Report 11905300 (Version 2)
Quarter: 2016Q2

REPORT INFORMATION
  Report Type: Spontaneous
  Country: US (occurrence: US)
  Receive Date: 20160109
  Receipt Date: 20160509
  Transmission Date: 20160815
  Serious: Yes (Death, Other)
  Sender: FDA-Public Use
  Company Number: US-JNJFOC-20151112852

PATIENT
  Age: 24 Year
  Sex: Male

DRUGS (3)
  1. LEVAQUIN [Suspect]
     Active Substance: LEVOFLOXACIN
     Indication: INFECTION
     Route: 065
  2. LEVAQUIN [Suspect]
     Active Substance: LEVOFLOXACIN
     Indication: NASAL SEPTAL OPERATION
     Route: 065
  3. RISPERDAL [Suspect]
     Active Substance: RISPERIDONE
     Indication: PRODUCT USED FOR UNKNOWN INDICATION
     Route: 065

REACTIONS (9)
  - Bipolar disorder [Unknown]
  - Depression [Unknown]
  - Palpitations [Unknown]
  - Confusional state [Unknown]
  - Completed suicide [Fatal]
  - Insomnia [Unknown]
  - Nightmare [Unknown]
  - Anxiety [Unknown]
  - Panic disorder [Unknown]
